FAERS Safety Report 8418264-6 (Version None)
Quarter: 2012Q2

REPORT INFORMATION
  Report Type: 
  Country: None (occurrence: None)
  Receive Date: 20120607
  Receipt Date: 20120531
  Transmission Date: 20120825
  Serious: Yes (Life-Threatening)
  Sender: FDA-Public Use
  Company Number: JP-BAYER-2012-053576

PATIENT
  Age: 73 Year
  Sex: Male

DRUGS (6)
  1. AMARYL [Concomitant]
     Dosage: DAILY DOSE 4 MG
     Route: 048
     Dates: start: 20110325, end: 20110511
  2. ACTOS [Suspect]
     Indication: DIABETES MELLITUS
     Dosage: DAILY DOSE 30 MG
     Route: 048
     Dates: end: 20110228
  3. LANTUS [Concomitant]
     Indication: DIABETES MELLITUS
     Dosage: DAILY DOSE 6 U
     Dates: start: 20110511
  4. ACARBOSE [Suspect]
     Indication: DIABETES MELLITUS
     Dosage: 50 MG, TID
     Route: 048
     Dates: start: 20101207
  5. AMARYL [Concomitant]
     Indication: DIABETES MELLITUS
     Dosage: DAILY DOSE 3.5 MG
     Route: 048
     Dates: end: 20110325
  6. AMARYL [Concomitant]
     Dosage: DAILY DOSE 2 MG
     Route: 048
     Dates: start: 20110511

REACTIONS (1)
  - CARDIAC FAILURE CONGESTIVE [None]
